FAERS Safety Report 9909051 (Version 2)
Quarter: 2014Q2

REPORT INFORMATION
  Report Type: Report from Study
  Country: CA (occurrence: CA)
  Receive Date: 20140219
  Receipt Date: 20140516
  Transmission Date: 20141212
  Serious: Yes (Other)
  Sender: FDA-Public Use
  Company Number: CA-JNJFOC-20140210739

PATIENT
  Age: 51 Year
  Sex: Male
  Weight: 97.5 kg

DRUGS (6)
  1. REMICADE [Suspect]
     Indication: CROHN^S DISEASE
     Dosage: INFUSION NO 81
     Route: 042
  2. REMICADE [Suspect]
     Indication: CROHN^S DISEASE
     Route: 042
     Dates: start: 20140214
  3. DIDROCAL [Concomitant]
     Route: 065
  4. PARIET [Concomitant]
     Route: 065
  5. IMURAN [Concomitant]
     Route: 065
  6. CITRATO DE CALCIO [Concomitant]
     Route: 065

REACTIONS (1)
  - Gastrointestinal inflammation [Not Recovered/Not Resolved]
